FAERS Safety Report 14754220 (Version 1)
Quarter: 2018Q2

REPORT INFORMATION
  Report Type: Spontaneous
  Country: PT (occurrence: PT)
  Receive Date: 20180412
  Receipt Date: 20180412
  Transmission Date: 20180711
  Serious: Yes (Other)
  Sender: FDA-Public Use
  Company Number: PT-BIOMARINAP-PT-2018-117855

PATIENT
  Age: 19 Year
  Sex: Female

DRUGS (1)
  1. NAGLAZYME [Suspect]
     Active Substance: GALSULFASE
     Indication: MUCOPOLYSACCHARIDOSIS VI
     Route: 065

REACTIONS (5)
  - Respiratory distress [Recovered/Resolved]
  - Post procedural haemorrhage [Recovered/Resolved]
  - Tracheal obstruction extrinsic [Recovered/Resolved]
  - Tracheomalacia [Recovered/Resolved]
  - Respiratory tract oedema [Recovered/Resolved]
